FAERS Safety Report 5141725-2 (Version None)
Quarter: 2006Q4

REPORT INFORMATION
  Report Type: 
  Country: None (occurrence: None)
  Receive Date: 20061026
  Receipt Date: 20061017
  Transmission Date: 20070319
  Serious: Yes (Hospitalization)
  Sender: FDA-Public Use
  Company Number: 2006-02565

PATIENT
  Age: 63 Year
  Sex: Female
  Weight: 71.4 kg

DRUGS (8)
  1. VELCADE [Suspect]
     Indication: GASTRIC CANCER
     Dosage: 1.30 MG/M2, IV BOLUS
     Route: 040
     Dates: start: 20060901, end: 20060911
  2. IRINOTECAN HCL [Suspect]
     Indication: GASTRIC CANCER
     Dosage: 125.00 MG/M2, INTRAVENOUS
     Route: 042
     Dates: start: 20060901, end: 20060908
  3. AVAIR (FLUTICASONE PROPIONATE, SALMETEROL XINAFOATE) INHALER [Concomitant]
  4. ADVIL [Concomitant]
  5. MULTIVITAMINS (ERGOCALCIFEROL, ASCORBIC ACID, PANTHENOL, NICOTINAMIDE, [Concomitant]
  6. COMPAZINE [Concomitant]
  7. PROCRIT [Concomitant]
  8. ZOFRAN [Concomitant]

REACTIONS (10)
  - ANAEMIA [None]
  - ENTEROCOCCAL INFECTION [None]
  - GASTROINTESTINAL MOTILITY DISORDER [None]
  - HYPOALBUMINAEMIA [None]
  - LIVER ABSCESS [None]
  - OEDEMA PERIPHERAL [None]
  - PAIN [None]
  - PLATELET DISORDER [None]
  - PROCTALGIA [None]
  - PYREXIA [None]
